FAERS Safety Report 9057909 (Version 1)
Quarter: 2013Q1

REPORT INFORMATION
  Report Type: Spontaneous
  Country: JP (occurrence: JP)
  Receive Date: 20130210
  Receipt Date: 20130210
  Transmission Date: 20140127
  Serious: Yes (Other)
  Sender: FDA-Public Use
  Company Number: JP-UCBSA-076723

PATIENT
  Age: 64 Year
  Sex: Female

DRUGS (1)
  1. XYZAL [Suspect]
     Route: 048
     Dates: start: 20120220

REACTIONS (3)
  - Blood potassium decreased [Unknown]
  - Renal impairment [Unknown]
  - Malaise [Unknown]
